FAERS Safety Report 8021558-X (Version None)
Quarter: 2011Q4

REPORT INFORMATION
  Report Type: 
  Country: None (occurrence: None)
  Receive Date: 20111230
  Receipt Date: 20111220
  Transmission Date: 20120403
  Serious: Yes (Life-Threatening, Other)
  Sender: FDA-Public Use
  Company Number: 2005JP000159

PATIENT
  Age: 14 Year
  Sex: Male

DRUGS (4)
  1. PREDNISOLONE [Concomitant]
  2. METHOTREXATE [Concomitant]
  3. METHYLPREDNISOLONE (METHYLPREDISOLONE) FORMULATION UNKNOWN [Concomitant]
  4. PROGRAF [Suspect]
     Indication: BONE MARROW TRANSPLANT
     Dates: start: 20020501, end: 20021217

REACTIONS (5)
  - CHRONIC GRAFT VERSUS HOST DISEASE [None]
  - POSTERIOR REVERSIBLE ENCEPHALOPATHY SYNDROME [None]
  - ACUTE GRAFT VERSUS HOST DISEASE [None]
  - GRAND MAL CONVULSION [None]
  - DRUG INEFFECTIVE [None]
